FAERS Safety Report 7546728-6 (Version None)
Quarter: 2011Q2

REPORT INFORMATION
  Report Type: 
  Country: None (occurrence: None)
  Receive Date: 20110614
  Receipt Date: 20110314
  Transmission Date: 20111010
  Serious: Yes (Other)
  Sender: FDA-Public Use
  Company Number: A0917922A

PATIENT
  Sex: Female

DRUGS (2)
  1. TYKERB [Suspect]
     Indication: BREAST CANCER
     Dosage: 1250MG PER DAY
     Route: 048
     Dates: start: 20110301, end: 20110527
  2. XELODA [Suspect]
     Dosage: 1800MG TWICE PER DAY
     Route: 065

REACTIONS (3)
  - FATIGUE [None]
  - DIARRHOEA [None]
  - NEOPLASM MALIGNANT [None]
